FAERS Safety Report 8360534-4 (Version None)
Quarter: 2012Q2

REPORT INFORMATION
  Report Type: 
  Country: None (occurrence: None)
  Receive Date: 20120515
  Receipt Date: 20120502
  Transmission Date: 20120825
  Serious: Yes (Hospitalization)
  Sender: FDA-Public Use
  Company Number: HR-ELI_LILLY_AND_COMPANY-HR201205002373

PATIENT
  Age: 47 Year
  Sex: Female
  Weight: 54 kg

DRUGS (2)
  1. GEMCITABINE HYDROCHLORIDE [Suspect]
     Indication: UTERINE CANCER
     Dosage: UNK
     Route: 042
     Dates: start: 20120116
  2. DOCETAXEL [Concomitant]
     Indication: UTERINE CANCER
     Dosage: UNK
     Route: 042
     Dates: start: 20120116

REACTIONS (4)
  - FATIGUE [None]
  - BONE PAIN [None]
  - NEUTROPENIA [None]
  - DIARRHOEA [None]
